FAERS Safety Report 24736669 (Version 1)
Quarter: 2024Q4

REPORT INFORMATION
  Report Type: Spontaneous
  Country: US (occurrence: None)
  Receive Date: 20241216
  Receipt Date: 20241216
  Transmission Date: 20250115
  Serious: Yes (Hospitalization)
  Sender: SUPERNUS PHARMACEUTICALS, INC.
  Company Number: US-ARIS GLOBAL-SUP202406-002250

PATIENT
  Age: 55 Year
  Sex: Female
  Weight: 79.37 kg

DRUGS (3)
  1. OXTELLAR XR [Suspect]
     Active Substance: OXCARBAZEPINE
     Indication: Bipolar disorder
     Dates: start: 202404
  2. VRAYLAR [Concomitant]
     Active Substance: CARIPRAZINE
     Dosage: NOT PROVIDED
  3. CAPLYTA [Concomitant]
     Active Substance: LUMATEPERONE
     Dosage: 42

REACTIONS (4)
  - Blood sodium decreased [Recovered/Resolved]
  - Visual impairment [Not Recovered/Not Resolved]
  - Migraine [Recovered/Resolved]
  - Product use in unapproved indication [Unknown]

NARRATIVE: CASE EVENT DATE: 20240101
